FAERS Safety Report 9840428 (Version 1)
Quarter: 2014Q1

REPORT INFORMATION
  Report Type: Spontaneous
  Country: US (occurrence: US)
  Receive Date: 20140124
  Receipt Date: 20140124
  Transmission Date: 20141002
  Serious: Yes (Hospitalization, Other)
  Sender: FDA-Public Use
  Company Number: US-BAYER-2014-011806

PATIENT
  Age: 28 Year
  Sex: Female

DRUGS (4)
  1. YAZ [Suspect]
  2. YASMIN [Suspect]
  3. ETORICOXIB [Concomitant]
     Dosage: 60 MG, UNK
  4. OCID [Concomitant]

REACTIONS (2)
  - Cholecystectomy [None]
  - Cholecystitis chronic [None]
